FAERS Safety Report 9803753 (Version 1)
Quarter: 2014Q1

REPORT INFORMATION
  Report Type: Spontaneous
  Country: US (occurrence: US)
  Receive Date: 20140108
  Receipt Date: 20140108
  Transmission Date: 20141002
  Serious: No
  Sender: FDA-Public Use
  Company Number: US-GLAXOSMITHKLINE-A1033578A

PATIENT
  Age: 76 Year
  Sex: Male

DRUGS (5)
  1. LOVAZA [Suspect]
     Indication: PRODUCT USED FOR UNKNOWN INDICATION
     Dosage: 4CAP PER DAY
     Route: 048
  2. NORVASC [Concomitant]
  3. NEXIUM [Concomitant]
  4. PROMETHAZINE [Concomitant]
  5. MEPERIDINE [Concomitant]

REACTIONS (3)
  - Eructation [Unknown]
  - Abdominal discomfort [Unknown]
  - Product quality issue [Unknown]
